FAERS Safety Report 17288166 (Version 3)
Quarter: 2020Q3

REPORT INFORMATION
  Report Type: Spontaneous
  Country: US (occurrence: US)
  Receive Date: 20200120
  Receipt Date: 20200925
  Transmission Date: 20201102
  Serious: Yes (Hospitalization, Other)
  Sender: FDA-Public Use
  Company Number: US-GILEAD-2020-0447086

PATIENT
  Age: 32 Year
  Sex: Male
  Weight: 70.3 kg

DRUGS (24)
  1. BACTRIM [Concomitant]
     Active Substance: SULFAMETHOXAZOLE\TRIMETHOPRIM
  2. MINOXIDIL. [Concomitant]
     Active Substance: MINOXIDIL
  3. OMEPRAZOLE. [Concomitant]
     Active Substance: OMEPRAZOLE
  4. HEPARIN [Concomitant]
     Active Substance: HEPARIN SODIUM
  5. NORVIR [Concomitant]
     Active Substance: RITONAVIR
  6. VANCOMYCIN [Concomitant]
     Active Substance: VANCOMYCIN
  7. CLONIDINE. [Concomitant]
     Active Substance: CLONIDINE
  8. DEXAMETHASONE. [Concomitant]
     Active Substance: DEXAMETHASONE
  9. NIFEDIPINE. [Concomitant]
     Active Substance: NIFEDIPINE
  10. VIREAD [Suspect]
     Active Substance: TENOFOVIR DISOPROXIL FUMARATE
     Indication: HIV INFECTION
     Dosage: UNK
     Route: 048
     Dates: start: 201606, end: 201907
  11. ASA [Concomitant]
     Active Substance: ASPIRIN
  12. RENAGEL [Concomitant]
     Active Substance: SEVELAMER HYDROCHLORIDE
  13. PANTOPRAZOLE [Concomitant]
     Active Substance: PANTOPRAZOLE
  14. ACETAMINOPHEN. [Concomitant]
     Active Substance: ACETAMINOPHEN
  15. AMOXICILLIN. [Concomitant]
     Active Substance: AMOXICILLIN
  16. HYDRALAZINE [Concomitant]
     Active Substance: HYDRALAZINE HYDROCHLORIDE
  17. MOTRIN [Concomitant]
     Active Substance: IBUPROFEN
  18. VIREAD [Suspect]
     Active Substance: TENOFOVIR DISOPROXIL FUMARATE
     Dosage: UNK
     Route: 048
     Dates: start: 201606, end: 201905
  19. PREZISTA [Concomitant]
     Active Substance: DARUNAVIR ETHANOLATE
  20. AMITRIPTYLINE [Concomitant]
     Active Substance: AMITRIPTYLINE
  21. CEFTAZIDIME. [Concomitant]
     Active Substance: CEFTAZIDIME
  22. AMLODIPINE [Concomitant]
     Active Substance: AMLODIPINE BESYLATE
  23. LABETALOL [Concomitant]
     Active Substance: LABETALOL\LABETALOL HYDROCHLORIDE
  24. COZAAR [Concomitant]
     Active Substance: LOSARTAN POTASSIUM

REACTIONS (16)
  - Renal failure [Not Recovered/Not Resolved]
  - Bone density decreased [Not Recovered/Not Resolved]
  - Tooth fracture [Unknown]
  - Bone loss [Not Recovered/Not Resolved]
  - Anhedonia [Unknown]
  - Urinary retention [Not Recovered/Not Resolved]
  - End stage renal disease [Not Recovered/Not Resolved]
  - Emotional distress [Unknown]
  - Loss of personal independence in daily activities [Not Recovered/Not Resolved]
  - Chronic kidney disease [Not Recovered/Not Resolved]
  - Tooth loss [Not Recovered/Not Resolved]
  - Depression [Not Recovered/Not Resolved]
  - Anxiety [Not Recovered/Not Resolved]
  - Mobility decreased [Not Recovered/Not Resolved]
  - Pain [Unknown]
  - Economic problem [Unknown]

NARRATIVE: CASE EVENT DATE: 2016
